FAERS Safety Report 5547142-5 (Version None)
Quarter: 2007Q4

REPORT INFORMATION
  Report Type: 
  Country: None (occurrence: None)
  Receive Date: 20071211
  Receipt Date: 20071129
  Transmission Date: 20080405
  Serious: Yes (Other)
  Sender: FDA-Public Use
  Company Number: PL-PFIZER INC-2007088229

PATIENT
  Sex: Female
  Weight: 62 kg

DRUGS (4)
  1. XALATAN [Suspect]
     Indication: GLAUCOMA
     Dosage: DAILY DOSE:1DROP
     Route: 031
     Dates: start: 20060801, end: 20070901
  2. BETALOC [Concomitant]
     Route: 048
  3. CONCOR [Concomitant]
     Route: 048
  4. ACARD [Concomitant]
     Route: 048

REACTIONS (4)
  - ARRHYTHMIA [None]
  - DYSPNOEA [None]
  - HYPERTENSION [None]
  - PALPITATIONS [None]
